FAERS Safety Report 8696562 (Version 2)
Quarter: 2012Q4

REPORT INFORMATION
  Report Type: 
  Country: US (occurrence: US)
  Receive Date: 20120801
  Receipt Date: 20121127
  Transmission Date: 20130627
  Serious: Yes (Hospitalization, Other)
  Sender: FDA-Public Use
  Company Number: US-BAYER-2012-074036

PATIENT
  Age: 28 Year
  Sex: Female
  Weight: 72.56 kg

DRUGS (14)
  1. YASMIN [Suspect]
     Indication: CONTRACEPTION
     Dosage: UNK
     Dates: start: 201109, end: 20111211
  2. YASMIN [Suspect]
     Indication: OVARIAN CYST
  3. YASMIN [Suspect]
     Indication: MENSTRUAL CYCLE MANAGEMENT
  4. PROZAC [Concomitant]
     Indication: DEPRESSION
     Dosage: UNK
     Dates: start: 2007
  5. PROZAC [Concomitant]
     Indication: ANXIETY
     Dosage: UNK
     Dates: start: 2009
  6. XANAX [Concomitant]
     Dosage: UNK
     Dates: start: 2007
  7. OXYCODONE [Concomitant]
     Dosage: UNK
     Dates: start: 2007
  8. PERCOCET [Concomitant]
     Dosage: UNK
     Dates: start: 2007
  9. ATIVAN [Concomitant]
     Dosage: UNK
     Dates: start: 2007
  10. BACTRIM [Concomitant]
     Dosage: UNK
     Dates: start: 201110
  11. IMITREX [Concomitant]
     Dosage: UNK
     Dates: start: 2011
  12. METOPROLOL [Concomitant]
     Indication: PAROXYSMAL SUPRAVENTRICULAR TACHYCARDIA
     Dosage: As needed
     Dates: start: 200909
  13. IBUPROFEN [Concomitant]
     Dosage: UNK
     Dates: start: 201109
  14. POTASSIUM [Concomitant]
     Dosage: UNK
     Dates: start: 200909

REACTIONS (20)
  - Pulmonary embolism [None]
  - Deep vein thrombosis [None]
  - Injury [None]
  - Pain [None]
  - Emotional distress [None]
  - Anxiety [None]
  - General physical health deterioration [None]
  - Pain in extremity [None]
  - Back pain [None]
  - Fatigue [None]
  - Irritability [None]
  - Dyspnoea [None]
  - Hyperhidrosis [None]
  - Mobility decreased [None]
  - Panic reaction [None]
  - Oxygen saturation decreased [None]
  - Feeling abnormal [None]
  - Fear of disease [None]
  - Paranoia [None]
  - Anxiety [None]
